FAERS Safety Report 21300708 (Version 2)
Quarter: 2024Q3

REPORT INFORMATION
  Report Type: Report from Study
  Country: DE (occurrence: DE)
  Receive Date: 20220907
  Receipt Date: 20240710
  Transmission Date: 20241017
  Serious: Yes (Hospitalization, Other)
  Sender: TAKEDA
  Company Number: DE-TAKEDA-2022TUS061795

PATIENT
  Age: 56 Year
  Sex: Male

DRUGS (9)
  1. HUMAN C1-ESTERASE INHIBITOR [Suspect]
     Active Substance: HUMAN C1-ESTERASE INHIBITOR
     Indication: Hereditary angioedema
     Dosage: 1000 INTERNATIONAL UNIT
     Route: 050
     Dates: start: 20170219
  2. HUMAN C1-ESTERASE INHIBITOR [Suspect]
     Active Substance: HUMAN C1-ESTERASE INHIBITOR
     Indication: Hereditary angioedema
     Dosage: 1000 INTERNATIONAL UNIT
     Route: 050
     Dates: start: 20170219
  3. HUMAN C1-ESTERASE INHIBITOR [Suspect]
     Active Substance: HUMAN C1-ESTERASE INHIBITOR
     Indication: Hereditary angioedema
     Dosage: 1000 INTERNATIONAL UNIT
     Route: 050
     Dates: start: 20170219
  4. HUMAN C1-ESTERASE INHIBITOR [Suspect]
     Active Substance: HUMAN C1-ESTERASE INHIBITOR
     Dosage: 1000 INTERNATIONAL UNIT
     Route: 050
     Dates: start: 20200516
  5. HUMAN C1-ESTERASE INHIBITOR [Suspect]
     Active Substance: HUMAN C1-ESTERASE INHIBITOR
     Dosage: 1000 INTERNATIONAL UNIT
     Route: 050
     Dates: start: 20200516
  6. HUMAN C1-ESTERASE INHIBITOR [Suspect]
     Active Substance: HUMAN C1-ESTERASE INHIBITOR
     Dosage: 1000 INTERNATIONAL UNIT
     Route: 050
     Dates: start: 20200516
  7. AMOXI CLAVULAN AL [Concomitant]
     Indication: Antibiotic prophylaxis
     Dosage: 875 MILLIGRAM, BID
     Route: 048
     Dates: start: 20180806, end: 2018
  8. Unacid [Concomitant]
     Dosage: UNK
     Route: 048
     Dates: start: 201809, end: 201809
  9. PANTOPRAZOLE SODIUM [Concomitant]
     Active Substance: PANTOPRAZOLE SODIUM
     Indication: Oesophageal carcinoma
     Dosage: 40 MILLIGRAM, BID
     Route: 048
     Dates: start: 20200421

REACTIONS (1)
  - Gastric neuroendocrine carcinoma [Recovered/Resolved]

NARRATIVE: CASE EVENT DATE: 20200915
